FAERS Safety Report 24565670 (Version 2)
Quarter: 2024Q4

REPORT INFORMATION
  Report Type: Spontaneous
  Country: JP (occurrence: JP)
  Receive Date: 20241030
  Receipt Date: 20241031
  Transmission Date: 20250114
  Serious: Yes (Other)
  Sender: AKEBIA THERAPEUTICS
  Company Number: JP-MTPC-MTPC2024-0021857

PATIENT
  Sex: Male

DRUGS (1)
  1. VADADUSTAT [Suspect]
     Active Substance: VADADUSTAT
     Indication: Product used for unknown indication
     Dosage: 150 MILLIGRAM, QD
     Route: 048

REACTIONS (5)
  - Visual field defect [Unknown]
  - Visual field defect [Unknown]
  - Optic nerve disorder [Unknown]
  - Vision blurred [Unknown]
  - Off label use [Unknown]
